FAERS Safety Report 9990995 (Version 1)
Quarter: 2014Q1

REPORT INFORMATION
  Report Type: Report from Study
  Country: US (occurrence: US)
  Receive Date: 20140310
  Receipt Date: 20140310
  Transmission Date: 20141002
  Serious: No
  Sender: FDA-Public Use
  Company Number: US-ABBVIE-13P-163-1132462-00

PATIENT
  Sex: Female
  Weight: 55.84 kg

DRUGS (5)
  1. HUMIRA [Suspect]
     Indication: RHEUMATOID ARTHRITIS
     Dates: end: 201307
  2. METHOTREXATE [Concomitant]
     Indication: PRODUCT USED FOR UNKNOWN INDICATION
  3. FOLIC ACID [Concomitant]
     Indication: PRODUCT USED FOR UNKNOWN INDICATION
  4. NAPROXEN [Concomitant]
     Indication: PRODUCT USED FOR UNKNOWN INDICATION
  5. UNKNOWN MEDICATION [Concomitant]
     Indication: PAIN
     Route: 061

REACTIONS (5)
  - Fatigue [Unknown]
  - Rheumatoid arthritis [Unknown]
  - Hypokinesia [Unknown]
  - Musculoskeletal pain [Unknown]
  - Drug effect incomplete [Unknown]
